FAERS Safety Report 13442796 (Version 1)
Quarter: 2017Q2

REPORT INFORMATION
  Report Type: Spontaneous
  Country: US (occurrence: US)
  Receive Date: 20170414
  Receipt Date: 20170414
  Transmission Date: 20170830
  Serious: No
  Sender: FDA-Public Use
  Company Number: US-PFIZER INC-2017154737

PATIENT
  Sex: Female

DRUGS (1)
  1. XELJANZ XR [Suspect]
     Active Substance: TOFACITINIB CITRATE
     Dosage: 11 MG, UNK

REACTIONS (13)
  - Dry eye [Unknown]
  - Fatigue [Unknown]
  - Nodule [Recovered/Resolved]
  - Anxiety [Unknown]
  - Insomnia [Unknown]
  - Asthenia [Unknown]
  - Arthralgia [Not Recovered/Not Resolved]
  - Depression [Unknown]
  - Musculoskeletal discomfort [Recovered/Resolved]
  - Joint swelling [Not Recovered/Not Resolved]
  - Weight increased [Unknown]
  - Musculoskeletal stiffness [Unknown]
  - Dry mouth [Unknown]
